FAERS Safety Report 11535530 (Version 1)
Quarter: 2015Q3

REPORT INFORMATION
  Report Type: Spontaneous
  Country: US (occurrence: US)
  Receive Date: 20150922
  Receipt Date: 20150922
  Transmission Date: 20151125
  Serious: No
  Sender: FDA-Public Use
  Company Number: US-BIOGENIDEC-2015BI127881

PATIENT
  Sex: Female

DRUGS (1)
  1. TYSABRI [Suspect]
     Active Substance: NATALIZUMAB
     Indication: PRODUCT USED FOR UNKNOWN INDICATION

REACTIONS (7)
  - Urinary tract infection [Unknown]
  - Urinary retention [Unknown]
  - Catheter placement [Unknown]
  - Mobility decreased [Unknown]
  - Hypoaesthesia [Unknown]
  - Blood potassium increased [Unknown]
  - Fatigue [Unknown]
